FAERS Safety Report 22038163 (Version 2)
Quarter: 2024Q1

REPORT INFORMATION
  Report Type: Spontaneous
  Country: US (occurrence: US)
  Receive Date: 20230227
  Receipt Date: 20240209
  Transmission Date: 20240410
  Serious: No
  Sender: FDA-Public Use
  Company Number: US-IGSA-BIG0017057

PATIENT
  Sex: Male
  Weight: 72.562 kg

DRUGS (24)
  1. PROLASTIN-C LIQUID [Suspect]
     Active Substance: .ALPHA.1-PROTEINASE INHIBITOR HUMAN
     Indication: Alpha-1 antitrypsin deficiency
     Dosage: 6480 MILLIGRAM, Q.WK.
     Route: 042
     Dates: start: 2021
  2. PROLASTIN-C LIQUID [Suspect]
     Active Substance: .ALPHA.1-PROTEINASE INHIBITOR HUMAN
     Dosage: 4320 MILLIGRAM, Q.WK.
     Route: 042
  3. PROLASTIN-C LIQUID [Suspect]
     Active Substance: .ALPHA.1-PROTEINASE INHIBITOR HUMAN
     Dosage: 4320 MILLIGRAM, Q.WK.
     Route: 042
     Dates: start: 20180914
  4. PROLASTIN-C LIQUID [Suspect]
     Active Substance: .ALPHA.1-PROTEINASE INHIBITOR HUMAN
     Dosage: 6480 MILLIGRAM, Q.WK.
  5. SPIRIVA [Concomitant]
     Active Substance: TIOTROPIUM BROMIDE MONOHYDRATE
  6. VENTOLIN HFA [Concomitant]
     Active Substance: ALBUTEROL SULFATE
  7. VITAMINS NOS [Concomitant]
     Active Substance: VITAMINS
  8. CLONAZEPAM [Concomitant]
     Active Substance: CLONAZEPAM
  9. SYMBICORT [Concomitant]
     Active Substance: BUDESONIDE\FORMOTEROL FUMARATE DIHYDRATE
  10. MODAFINIL [Concomitant]
     Active Substance: MODAFINIL
  11. LORAZEPAM [Concomitant]
     Active Substance: LORAZEPAM
  12. SERTRALINE [Concomitant]
     Active Substance: SERTRALINE HYDROCHLORIDE
  13. AZITHROMYCIN [Concomitant]
     Active Substance: AZITHROMYCIN
  14. PREDNISONE [Concomitant]
     Active Substance: PREDNISONE
  15. AMOXICILLIN [Concomitant]
     Active Substance: AMOXICILLIN
  16. BREZTRI [Concomitant]
     Active Substance: BUDESONIDE\FORMOTEROL\GLYCOPYRROLATE
  17. DALIRESP [Concomitant]
     Active Substance: ROFLUMILAST
  18. NYSTATIN [Concomitant]
     Active Substance: NYSTATIN
  19. TYVASO [Concomitant]
     Active Substance: TREPROSTINIL
  20. TADALAFIL [Concomitant]
     Active Substance: TADALAFIL
  21. SPIRONOLACTONE [Concomitant]
     Active Substance: SPIRONOLACTONE
  22. FUROSEMIDE [Concomitant]
     Active Substance: FUROSEMIDE
  23. MONTELUKAST [Concomitant]
     Active Substance: MONTELUKAST SODIUM
  24. CETIRIZINE [Concomitant]
     Active Substance: CETIRIZINE HYDROCHLORIDE

REACTIONS (1)
  - Drug ineffective [Not Recovered/Not Resolved]
